FAERS Safety Report 7491925-1 (Version None)
Quarter: 2011Q2

REPORT INFORMATION
  Report Type: 
  Country: None (occurrence: None)
  Receive Date: 20110518
  Receipt Date: 20110518
  Transmission Date: 20111010
  Serious: No
  Sender: FDA-Public Use
  Company Number: None

PATIENT
  Age: 42 Year
  Sex: Female
  Weight: 72.7 kg

DRUGS (1)
  1. PRAMIPEXOLE DIHYDROCHLORIDE [Suspect]
     Indication: PARKINSON'S DISEASE
     Dosage: PRAMIPEXOLE (GENERIC) 0.5MG 1 BID PO
     Route: 048

REACTIONS (8)
  - SEDATION [None]
  - ABDOMINAL PAIN [None]
  - SENSORY DISTURBANCE [None]
  - PRODUCT SUBSTITUTION ISSUE [None]
  - MYALGIA [None]
  - HALLUCINATION [None]
  - NAUSEA [None]
  - INFLUENZA LIKE ILLNESS [None]
